FAERS Safety Report 8812443 (Version 3)
Quarter: 2015Q2

REPORT INFORMATION
  Report Type: Report from Study
  Country: US (occurrence: US)
  Receive Date: 20120927
  Receipt Date: 20150401
  Transmission Date: 20150821
  Serious: Yes (Death)
  Sender: FDA-Public Use
  Company Number: US-ROCHE-1126959

PATIENT
  Age: 62 Year
  Sex: Female

DRUGS (36)
  1. AVASTIN [Suspect]
     Active Substance: BEVACIZUMAB
     Indication: LUNG NEOPLASM MALIGNANT
     Route: 042
     Dates: start: 200805
  2. AVASTIN [Suspect]
     Active Substance: BEVACIZUMAB
     Indication: LYMPHOMA
  3. CIMETIDINE [Concomitant]
     Active Substance: CIMETIDINE
     Route: 042
  4. LISINOPRIL. [Concomitant]
     Active Substance: LISINOPRIL
     Dosage: AT BED TIME EVERY NIGHT
     Route: 065
  5. ANACIN [Concomitant]
     Active Substance: ASPIRIN\CAFFEINE
     Route: 042
  6. GLIPIZIDE. [Concomitant]
     Active Substance: GLIPIZIDE
     Route: 065
  7. PREVACID [Concomitant]
     Active Substance: LANSOPRAZOLE
     Route: 042
  8. ZOFRAN [Concomitant]
     Active Substance: ONDANSETRON HYDROCHLORIDE
     Indication: NAUSEA
     Route: 042
  9. ROBITUSSIN AC (UNITED STATES) [Concomitant]
     Route: 042
  10. METFORMIN HYDROCHLORIDE. [Concomitant]
     Active Substance: METFORMIN HYDROCHLORIDE
     Route: 065
  11. CLARITIN [Concomitant]
     Active Substance: LORATADINE
     Route: 042
  12. AVASTIN [Suspect]
     Active Substance: BEVACIZUMAB
     Indication: LUNG NEOPLASM MALIGNANT
  13. CISPLATIN. [Suspect]
     Active Substance: CISPLATIN
     Indication: LUNG NEOPLASM MALIGNANT
     Route: 042
     Dates: start: 200805
  14. TAXOTERE [Suspect]
     Active Substance: DOCETAXEL
     Indication: METASTATIC NEOPLASM
     Route: 042
  15. DECADRON [Concomitant]
     Active Substance: DEXAMETHASONE
     Route: 042
  16. DIPHENHYDRAMINE [Concomitant]
     Active Substance: DIPHENHYDRAMINE
     Route: 042
  17. VITAMIN B12 [Concomitant]
     Active Substance: CYANOCOBALAMIN
     Route: 065
  18. ACTIVASE [Concomitant]
     Active Substance: ALTEPLASE
     Route: 065
  19. ZOSYN [Concomitant]
     Active Substance: PIPERACILLIN SODIUM\TAZOBACTAM SODIUM
     Route: 042
  20. PROTONIX (UNITED STATES) [Concomitant]
     Route: 048
  21. ALIMTA [Suspect]
     Active Substance: PEMETREXED DISODIUM
     Indication: LUNG NEOPLASM MALIGNANT
     Route: 042
     Dates: start: 200805
  22. ACTIVASE [Concomitant]
     Active Substance: ALTEPLASE
     Route: 042
  23. PRAVACHOL [Concomitant]
     Active Substance: PRAVASTATIN SODIUM
     Route: 042
  24. PEMETREXED [Concomitant]
     Active Substance: PEMETREXED
     Route: 042
  25. FLUTICASONE [Concomitant]
     Active Substance: FLUTICASONE\FLUTICASONE PROPIONATE
     Route: 042
  26. EMEND [Concomitant]
     Active Substance: APREPITANT
     Route: 065
  27. AZITHROMYCIN [Concomitant]
     Active Substance: AZITHROMYCIN ANHYDROUS
     Route: 042
  28. ONDANSETRON [Concomitant]
     Active Substance: ONDANSETRON
     Route: 042
  29. NITROGLYCERINE [Concomitant]
     Active Substance: NITROGLYCERIN
     Route: 042
  30. FOLIC ACID. [Concomitant]
     Active Substance: FOLIC ACID
     Route: 065
  31. LASIX [Concomitant]
     Active Substance: FUROSEMIDE
     Route: 065
  32. ALBUTEROL. [Concomitant]
     Active Substance: ALBUTEROL
     Indication: WHEEZING
     Route: 045
  33. ACTOS [Concomitant]
     Active Substance: PIOGLITAZONE HYDROCHLORIDE
  34. ZOLOFT [Concomitant]
     Active Substance: SERTRALINE HYDROCHLORIDE
     Route: 065
  35. ALOXI [Concomitant]
     Active Substance: PALONOSETRON HYDROCHLORIDE
     Route: 042
  36. ANZEMET [Concomitant]
     Active Substance: DOLASETRON MESYLATE

REACTIONS (14)
  - Death [Fatal]
  - Gastrointestinal toxicity [Unknown]
  - Impaired healing [Unknown]
  - Stomatitis [Unknown]
  - Alopecia [Unknown]
  - Oropharyngeal pain [Unknown]
  - Dehydration [Unknown]
  - Asthenia [Unknown]
  - Dizziness [Unknown]
  - Disease progression [Unknown]
  - Lung infiltration [Unknown]
  - Dyspnoea exertional [Unknown]
  - Ear discomfort [Unknown]
  - Dyspnoea [Unknown]

NARRATIVE: CASE EVENT DATE: 20090905
